FAERS Safety Report 18957453 (Version 1)
Quarter: 2021Q1

REPORT INFORMATION
  Report Type: Spontaneous
  Country: US (occurrence: US)
  Receive Date: 20210302
  Receipt Date: 20210302
  Transmission Date: 20210420
  Serious: Yes (Other)
  Sender: FDA-Public Use
  Company Number: US-ALLERGAN-2046412US

PATIENT
  Sex: Male

DRUGS (3)
  1. HYDROCODONE [Suspect]
     Active Substance: HYDROCODONE
     Indication: PAIN
  2. PERCOCET [Suspect]
     Active Substance: ACETAMINOPHEN\OXYCODONE HYDROCHLORIDE
     Indication: PAIN
  3. NORCO [Suspect]
     Active Substance: ACETAMINOPHEN\HYDROCODONE BITARTRATE
     Indication: PAIN

REACTIONS (5)
  - Abnormal behaviour [Unknown]
  - Drug dependence [Unknown]
  - Depression [Unknown]
  - Social avoidant behaviour [Unknown]
  - Mood swings [Unknown]
